FAERS Safety Report 18783445 (Version 2)
Quarter: 2021Q1

REPORT INFORMATION
  Report Type: Spontaneous
  Country: US (occurrence: US)
  Receive Date: 20210125
  Receipt Date: 20210215
  Transmission Date: 20210419
  Serious: No
  Sender: FDA-Public Use
  Company Number: US-ASTRAZENECA-2021A009879

PATIENT
  Sex: Male
  Weight: 115.7 kg

DRUGS (1)
  1. BYDUREON BCISE [Suspect]
     Active Substance: EXENATIDE
     Indication: TYPE 2 DIABETES MELLITUS
     Dosage: ONCE A WEEK
     Route: 065

REACTIONS (5)
  - Injection site haemorrhage [Unknown]
  - Device leakage [Unknown]
  - Injection site induration [Unknown]
  - Device issue [Unknown]
  - Incorrect dose administered by device [Unknown]
